FAERS Safety Report 4896864-8 (Version None)
Quarter: 2006Q1

REPORT INFORMATION
  Report Type: 
  Country: None (occurrence: None)
  Receive Date: 20060126
  Receipt Date: 20060116
  Transmission Date: 20060701
  Serious: Yes (Hospitalization)
  Sender: FDA-Public Use
  Company Number: 200610061BFR

PATIENT
  Age: 75 Year
  Sex: Female

DRUGS (10)
  1. CIPROFLOXACIN [Suspect]
     Indication: BRONCHOPNEUMOPATHY
     Dosage: ORAL
     Route: 048
  2. KARDEGIC [Concomitant]
  3. LOVENOX [Concomitant]
  4. AMIODARONE [Concomitant]
  5. THERALENE [Concomitant]
  6. ZOPICLONE [Concomitant]
  7. BRICANYL [Concomitant]
  8. ATROVENT [Concomitant]
  9. TRINIPATCH [Concomitant]
  10. ACEBUTOLOL [Concomitant]

REACTIONS (1)
  - ACUTE GENERALISED EXANTHEMATOUS PUSTULOSIS [None]
